FAERS Safety Report 9285939 (Version 1)
Quarter: 2013Q2

REPORT INFORMATION
  Report Type: Spontaneous
  Country: US (occurrence: None)
  Receive Date: 20130510
  Receipt Date: 20130510
  Transmission Date: 20140414
  Serious: Yes (Hospitalization)
  Sender: FDA-Public Use
  Company Number: None

PATIENT
  Age: 54 Year
  Sex: Female
  Weight: 57.15 kg

DRUGS (1)
  1. DELZICOL [Suspect]
     Indication: COLITIS ULCERATIVE
     Dosage: 400MMG?2 CAPSULES?THREE TIMES A DAY?BY MOUTH
     Route: 048
     Dates: start: 20130415, end: 20130507

REACTIONS (1)
  - Foreign body [None]
